FAERS Safety Report 21590593 (Version 1)
Quarter: 2022Q4

REPORT INFORMATION
  Report Type: Report from Study
  Country: CA (occurrence: CA)
  Receive Date: 20221114
  Receipt Date: 20221114
  Transmission Date: 20230113
  Serious: Yes (Other)
  Sender: FDA-Public Use
  Company Number: CA-CELLTRION INC.-2022CA019028

PATIENT

DRUGS (4)
  1. TRUXIMA [Suspect]
     Active Substance: RITUXIMAB-ABBS
     Indication: Autoimmune haemolytic anaemia
     Dosage: 375 MG/M2 WEEKLY FOR 4 WEEKS (BSA 1.8)
     Route: 042
  2. TRUXIMA [Suspect]
     Active Substance: RITUXIMAB-ABBS
     Dosage: 500 MG, 4 X 500 M VIALS
  3. TRUXIMA [Suspect]
     Active Substance: RITUXIMAB-ABBS
     Dosage: 100 MG, 8 X 100 MG VIALS
  4. TRUXIMA [Suspect]
     Active Substance: RITUXIMAB-ABBS
     Dosage: 675 MG X 4 DOSES

REACTIONS (4)
  - Autoimmune haemolytic anaemia [Unknown]
  - Insurance issue [Unknown]
  - Inability to afford medication [Unknown]
  - Off label use [Unknown]
